FAERS Safety Report 9333686 (Version 1)
Quarter: 2013Q2

REPORT INFORMATION
  Report Type: Spontaneous
  Country: US (occurrence: US)
  Receive Date: 20130606
  Receipt Date: 20130606
  Transmission Date: 20140414
  Serious: No
  Sender: FDA-Public Use
  Company Number: US-AMGEN-USASP2012077784

PATIENT
  Age: 86 Year
  Sex: Female
  Weight: 29.93 kg

DRUGS (3)
  1. PROLIA [Suspect]
     Indication: OSTEOPOROSIS POSTMENOPAUSAL
     Dosage: UNK UNK, Q6MO
     Dates: start: 20110111
  2. SYNTHROID [Concomitant]
     Indication: THYROID DISORDER
     Dosage: 75 MG, QD
     Route: 048
     Dates: start: 2000
  3. SINGULAR [Concomitant]
     Indication: HYPERSENSITIVITY
     Dosage: 10 MG, QD
     Route: 048
     Dates: start: 2000

REACTIONS (1)
  - Bone density decreased [Not Recovered/Not Resolved]
